FAERS Safety Report 24336358 (Version 1)
Quarter: 2024Q3

REPORT INFORMATION
  Report Type: Spontaneous
  Country: KR (occurrence: KR)
  Receive Date: 20240919
  Receipt Date: 20240919
  Transmission Date: 20241017
  Serious: No
  Sender: ROCHE
  Company Number: KR-ROCHE-3555809

PATIENT
  Age: 7 Year
  Sex: Male

DRUGS (4)
  1. TAMIFLU [Suspect]
     Active Substance: OSELTAMIVIR PHOSPHATE
     Indication: Product used for unknown indication
     Route: 065
     Dates: start: 20230523, end: 20230528
  2. KETOTIFEN FUMARATE [Suspect]
     Active Substance: KETOTIFEN FUMARATE
     Indication: Product used for unknown indication
     Route: 065
     Dates: start: 20230523, end: 20230528
  3. ACETAMINOPHEN [Suspect]
     Active Substance: ACETAMINOPHEN
     Indication: Product used for unknown indication
     Route: 065
     Dates: start: 20230523, end: 20230528
  4. DEXIBUPROFEN [Suspect]
     Active Substance: DEXIBUPROFEN
     Indication: Product used for unknown indication
     Route: 065
     Dates: start: 20230523, end: 20230528

REACTIONS (1)
  - Abnormal sleep-related event [Recovered/Resolved]

NARRATIVE: CASE EVENT DATE: 20230523
